FAERS Safety Report 11091673 (Version 1)
Quarter: 2015Q2

REPORT INFORMATION
  Report Type: Spontaneous
  Country: DE (occurrence: DE)
  Receive Date: 20150505
  Receipt Date: 20150505
  Transmission Date: 20150821
  Serious: Yes (Congenital Anomaly)
  Sender: FDA-Public Use
  Company Number: DE-ASTRAZENECA-2015SE39498

PATIENT
  Sex: Male

DRUGS (7)
  1. QUETIAPIN [Suspect]
     Active Substance: QUETIAPINE
     Indication: DEPRESSION
     Route: 064
     Dates: start: 201403, end: 201409
  2. QUETIAPIN [Suspect]
     Active Substance: QUETIAPINE
     Indication: SLEEP DISORDER
     Route: 064
     Dates: start: 201410, end: 20150311
  3. QUETIAPIN [Suspect]
     Active Substance: QUETIAPINE
     Indication: DEPRESSION
     Route: 064
     Dates: start: 201410, end: 20150311
  4. QUETIAPIN [Suspect]
     Active Substance: QUETIAPINE
     Indication: SLEEP DISORDER
     Route: 064
     Dates: start: 201403, end: 201409
  5. QUETIAPIN [Suspect]
     Active Substance: QUETIAPINE
     Indication: SLEEP DISORDER
     Route: 064
     Dates: start: 201410, end: 20150311
  6. SERTRALINE [Suspect]
     Active Substance: SERTRALINE HYDROCHLORIDE
     Indication: DEPRESSION
     Route: 064
     Dates: start: 201403
  7. QUETIAPIN [Suspect]
     Active Substance: QUETIAPINE
     Indication: DEPRESSION
     Route: 064
     Dates: start: 201410, end: 20150311

REACTIONS (1)
  - Limb reduction defect [Not Recovered/Not Resolved]

NARRATIVE: CASE EVENT DATE: 2015
